FAERS Safety Report 18077984 (Version 1)
Quarter: 2020Q3

REPORT INFORMATION
  Report Type: Spontaneous
  Country: US (occurrence: US)
  Receive Date: 20200727
  Receipt Date: 20200727
  Transmission Date: 20201103
  Serious: No
  Sender: FDA-Public Use
  Company Number: US-SEATTLE GENETICS-2020SGN02339

PATIENT
  Sex: Female

DRUGS (2)
  1. TUKYSA [Suspect]
     Active Substance: TUCATINIB
     Indication: BREAST CANCER FEMALE
  2. TUKYSA [Suspect]
     Active Substance: TUCATINIB
     Indication: BREAST CANCER

REACTIONS (14)
  - Pain [Unknown]
  - Chapped lips [Unknown]
  - Sinus headache [Unknown]
  - Haematochezia [Unknown]
  - Impaired healing [Unknown]
  - Dry mouth [Unknown]
  - Fatigue [Unknown]
  - Diarrhoea haemorrhagic [Unknown]
  - Sleep disorder [Unknown]
  - Nausea [Unknown]
  - Lip pain [Unknown]
  - Lip dry [Unknown]
  - Decreased appetite [Unknown]
  - Diarrhoea [Unknown]
